FAERS Safety Report 18308766 (Version 1)
Quarter: 2020Q3

REPORT INFORMATION
  Report Type: Spontaneous
  Country: US (occurrence: US)
  Receive Date: 20200925
  Receipt Date: 20200925
  Transmission Date: 20201103
  Serious: Yes (Other)
  Sender: FDA-Public Use
  Company Number: US-SUN PHARMACEUTICAL INDUSTRIES LTD-2020R1-261732

PATIENT
  Age: 55 Year
  Sex: Female

DRUGS (3)
  1. LITHIUM. [Suspect]
     Active Substance: LITHIUM
     Dosage: 750 MILLIGRAM, DAILY (300 MG AT A.M. AND 450 MG AT BEDTIME)
     Route: 065
  2. LAMOTRIGINE. [Concomitant]
     Active Substance: LAMOTRIGINE
     Indication: BIPOLAR DISORDER
     Dosage: UNK
     Route: 065
  3. LITHIUM. [Suspect]
     Active Substance: LITHIUM
     Indication: BIPOLAR DISORDER
     Dosage: 600 MILLIGRAM, BID
     Route: 065

REACTIONS (5)
  - Parathyroid tumour benign [Unknown]
  - Hyperparathyroidism [Unknown]
  - Nephrogenic diabetes insipidus [Unknown]
  - Proteinuria [Unknown]
  - Nephropathy [Unknown]
